FAERS Safety Report 25515550 (Version 1)
Quarter: 2025Q3

REPORT INFORMATION
  Report Type: Spontaneous
  Country: US (occurrence: US)
  Receive Date: 20250704
  Receipt Date: 20250704
  Transmission Date: 20251021
  Serious: No
  Sender: TEVA
  Company Number: US-TEVA-VS-3348274

PATIENT
  Age: 44 Year
  Sex: Female

DRUGS (1)
  1. LORAZEPAM [Suspect]
     Active Substance: LORAZEPAM
     Indication: Anxiety disorder
     Route: 065

REACTIONS (5)
  - Headache [Unknown]
  - Nausea [Unknown]
  - Hypersensitivity [Unknown]
  - Sneezing [Unknown]
  - Drug ineffective [Unknown]

NARRATIVE: CASE EVENT DATE: 20250619
